FAERS Safety Report 8071819-3 (Version None)
Quarter: 2012Q1

REPORT INFORMATION
  Report Type: 
  Country: None (occurrence: None)
  Receive Date: 20120126
  Receipt Date: 20120117
  Transmission Date: 20120608
  Serious: No
  Sender: FDA-Public Use
  Company Number: US-BIOGENIDEC-2012BI000316

PATIENT
  Age: 48 Year
  Sex: Female

DRUGS (2)
  1. TAMOXIFEN CITRATE [Concomitant]
     Indication: BREAST CANCER
     Dates: start: 20080101
  2. TYSABRI [Suspect]
     Indication: MULTIPLE SCLEROSIS
     Route: 042
     Dates: start: 20111221

REACTIONS (9)
  - ASTHENIA [None]
  - NAUSEA [None]
  - TREMOR [None]
  - HEADACHE [None]
  - ABDOMINAL DISCOMFORT [None]
  - FATIGUE [None]
  - FLUSHING [None]
  - SEASONAL ALLERGY [None]
  - UPPER RESPIRATORY TRACT INFECTION [None]
